FAERS Safety Report 12900937 (Version 9)
Quarter: 2017Q3

REPORT INFORMATION
  Report Type: Spontaneous
  Country: US (occurrence: US)
  Receive Date: 20161101
  Receipt Date: 20170913
  Transmission Date: 20171127
  Serious: Yes (Congenital Anomaly, Other)
  Sender: FDA-Public Use
  Company Number: PHEH2016US028079

PATIENT
  Sex: Male

DRUGS (2)
  1. ZOFRAN ODT [Suspect]
     Active Substance: ONDANSETRON HYDROCHLORIDE
     Indication: FOETAL EXPOSURE DURING PREGNANCY
     Dosage: MOTHER^S DOSE: 4 MG, QD AND 4 MG Q8H
     Route: 064
  2. ONDANSETRON HYDROCHLORIDE. [Suspect]
     Active Substance: ONDANSETRON HYDROCHLORIDE
     Indication: FOETAL EXPOSURE DURING PREGNANCY
     Dosage: MOTHER^S DOSE: 4MG PER 2 ML, Q8H
     Route: 064

REACTIONS (10)
  - Heart disease congenital [Unknown]
  - Congenital coronary artery malformation [Unknown]
  - Kawasaki^s disease [Unknown]
  - Urinary tract infection [Unknown]
  - Eczema [Unknown]
  - Pyrexia [Unknown]
  - Phimosis [Unknown]
  - Right ventricular hypertrophy [Unknown]
  - Rash [Unknown]
  - Foetal exposure during pregnancy [Unknown]
